FAERS Safety Report 21190697 (Version 2)
Quarter: 2022Q3

REPORT INFORMATION
  Report Type: Report from Study
  Country: US (occurrence: US)
  Receive Date: 20220809
  Receipt Date: 20220816
  Transmission Date: 20221027
  Serious: Yes (Life-Threatening, Hospitalization, Other)
  Sender: FDA-Public Use
  Company Number: US-PFIZER INC-PV202200037661

PATIENT
  Age: 20 Year
  Sex: Female

DRUGS (5)
  1. TALAZOPARIB [Suspect]
     Active Substance: TALAZOPARIB
     Indication: Ewing^s sarcoma metastatic
     Dosage: 500 UG (ONCE)
     Route: 048
     Dates: start: 20220804, end: 20220804
  2. ONIVYDE [Suspect]
     Active Substance: IRINOTECAN HYDROCHLORIDE
     Indication: Ewing^s sarcoma metastatic
     Dosage: 172 MG PRESCRIBED, BUT INFUSION STOPPED AT 2 MINUTES SO PT RECEIVED APPROXIMATELY 3.2 MG (ONCE)
     Dates: start: 20220804, end: 20220804
  3. CEFIXIME [Concomitant]
     Active Substance: CEFIXIME
     Indication: Prophylaxis
     Dosage: UNK
     Route: 048
     Dates: start: 20220804, end: 20220804
  4. DEXAMETHASONE [Concomitant]
     Active Substance: DEXAMETHASONE
     Indication: Prophylaxis
     Dosage: UNK
     Route: 042
     Dates: start: 20220804, end: 20220804
  5. FAMOTIDINE [Concomitant]
     Active Substance: FAMOTIDINE
     Indication: Prophylaxis
     Dosage: UNK
     Route: 042
     Dates: start: 20220804, end: 20220804

REACTIONS (1)
  - Anaphylactic reaction [Recovering/Resolving]

NARRATIVE: CASE EVENT DATE: 20220804
